FAERS Safety Report 7325321-4 (Version None)
Quarter: 2011Q1

REPORT INFORMATION
  Report Type: 
  Country: None (occurrence: None)
  Receive Date: 20110302
  Receipt Date: 20110214
  Transmission Date: 20110831
  Serious: Yes (Other)
  Sender: FDA-Public Use
  Company Number: US-BAYER-201037536NA

PATIENT
  Sex: Female

DRUGS (2)
  1. YAZ [Suspect]
     Indication: DYSMENORRHOEA
     Route: 048
     Dates: start: 20080601, end: 20081012
  2. YASMIN [Suspect]
     Indication: PRODUCT USED FOR UNKNOWN INDICATION
     Route: 048
     Dates: start: 20080601, end: 20081012

REACTIONS (2)
  - PULMONARY EMBOLISM [None]
  - NON-CARDIAC CHEST PAIN [None]
